FAERS Safety Report 9160227 (Version 2)
Quarter: 2013Q2

REPORT INFORMATION
  Report Type: Report from Study
  Country: CA (occurrence: CA)
  Receive Date: 20130313
  Receipt Date: 20130410
  Transmission Date: 20140414
  Serious: Yes (Life-Threatening, Hospitalization, Other)
  Sender: FDA-Public Use
  Company Number: CA-ROCHE-1200659

PATIENT
  Sex: Female
  Weight: 60 kg

DRUGS (7)
  1. RITUXAN [Suspect]
     Indication: LYMPHOMA
     Route: 042
     Dates: start: 2002
  2. BISOPROLOL [Concomitant]
  3. ZOCOR [Concomitant]
  4. CLONAZEPAM [Concomitant]
  5. VENTOLIN [Concomitant]
  6. SYMBICORT [Concomitant]
  7. IMMUNOGLOBULIN IV [Concomitant]
     Indication: ANAEMIA
     Route: 042

REACTIONS (5)
  - Atrial fibrillation [Unknown]
  - Cardiac failure congestive [Unknown]
  - Herpes zoster [Recovered/Resolved]
  - Cerebrovascular accident [Unknown]
  - Neuralgia [Unknown]
